FAERS Safety Report 6761361-1 (Version None)
Quarter: 2010Q2

REPORT INFORMATION
  Report Type: 
  Country: None (occurrence: None)
  Receive Date: 20100607
  Receipt Date: 20100521
  Transmission Date: 20101027
  Serious: Yes (Hospitalization)
  Sender: FDA-Public Use
  Company Number: 2010002057

PATIENT
  Age: 62 Year
  Sex: Male

DRUGS (4)
  1. ERLOTINIB/PLACEBO (ERLOTINIB) (TABLET) (ERLOTINIB) [Suspect]
     Indication: NON-SMALL CELL LUNG CANCER
     Dosage: QD, ORAL
     Route: 048
     Dates: start: 20100426
  2. DEXAMETHASONE [Concomitant]
  3. MAXIDEX [Concomitant]
  4. OMEPRAZOLE [Concomitant]

REACTIONS (2)
  - ANAEMIA [None]
  - BLOOD SODIUM DECREASED [None]
